FAERS Safety Report 15276409 (Version 1)
Quarter: 2018Q3

REPORT INFORMATION
  Report Type: Report from Study
  Country: CA (occurrence: CA)
  Receive Date: 20180814
  Receipt Date: 20180814
  Transmission Date: 20181010
  Serious: Yes (Other)
  Sender: FDA-Public Use
  Company Number: CA-JNJFOC-20180810488

PATIENT
  Age: 13 Year
  Sex: Male
  Weight: 37 kg

DRUGS (2)
  1. REMICADE [Suspect]
     Active Substance: INFLIXIMAB
     Indication: COLITIS ULCERATIVE
     Dosage: STRENGTH = 100 MG
     Route: 042
     Dates: start: 20180713
  2. IRON [Concomitant]
     Active Substance: IRON
     Route: 048

REACTIONS (4)
  - Vomiting [Recovered/Resolved]
  - General physical health deterioration [Unknown]
  - Abdominal pain upper [Not Recovered/Not Resolved]
  - Rectal haemorrhage [Not Recovered/Not Resolved]

NARRATIVE: CASE EVENT DATE: 201807
